FAERS Safety Report 9942688 (Version 1)
Quarter: 2014Q1

REPORT INFORMATION
  Report Type: Report from Study
  Country: US (occurrence: US)
  Receive Date: 20140303
  Receipt Date: 20140303
  Transmission Date: 20141002
  Serious: No
  Sender: FDA-Public Use
  Company Number: US-ABBVIE-13P-163-1046603-00

PATIENT
  Age: 60 Year
  Sex: Male

DRUGS (3)
  1. HUMIRA [Suspect]
     Indication: CROHN^S DISEASE
     Dosage: STARTER KIT, 2 PENS, DAY 1
     Route: 058
     Dates: start: 20130125, end: 20130125
  2. HUMIRA [Suspect]
     Dosage: DAY 2
     Route: 058
  3. HUMIRA [Suspect]
     Dosage: DAY 15
     Route: 058

REACTIONS (7)
  - Fatigue [Unknown]
  - Nausea [Unknown]
  - Vomiting [Unknown]
  - Chills [Unknown]
  - Oropharyngeal pain [Unknown]
  - Injection site induration [Unknown]
  - Injection site bruising [Unknown]
